FAERS Safety Report 7669215-3 (Version None)
Quarter: 2011Q3

REPORT INFORMATION
  Report Type: 
  Country: None (occurrence: None)
  Receive Date: 20110808
  Receipt Date: 20110727
  Transmission Date: 20111222
  Serious: Yes (Hospitalization, Other)
  Sender: FDA-Public Use
  Company Number: PHHY2011US46311

PATIENT
  Sex: Female
  Weight: 83.9 kg

DRUGS (2)
  1. EXJADE [Suspect]
     Indication: NEOPLASM
     Dosage: 2000 MG, QD
     Route: 048
     Dates: start: 20060829
  2. EXJADE [Suspect]
     Indication: IRON OVERLOAD

REACTIONS (2)
  - SMALL INTESTINAL OBSTRUCTION [None]
  - INTESTINAL OBSTRUCTION [None]
